FAERS Safety Report 13993987 (Version 2)
Quarter: 2017Q4

REPORT INFORMATION
  Report Type: Report from Study
  Country: VE (occurrence: VE)
  Receive Date: 20170920
  Receipt Date: 20171026
  Transmission Date: 20180321
  Serious: Yes (Hospitalization, Other)
  Sender: FDA-Public Use
  Company Number: PHHY2017VE135968

PATIENT
  Sex: Male
  Weight: 16 kg

DRUGS (3)
  1. FOLIC ACID. [Suspect]
     Active Substance: FOLIC ACID
     Indication: ANAEMIA
     Dosage: 5 MG, QD
     Route: 065
  2. ERYTHROPOIETIN [Concomitant]
     Active Substance: ERYTHROPOIETIN
     Indication: ANAEMIA
     Dosage: UNK UNK, QD
     Route: 065
  3. EXJADE [Suspect]
     Active Substance: DEFERASIROX
     Indication: HEREDITARY HAEMOLYTIC ANAEMIA
     Dosage: 250 MG, QD
     Route: 048
     Dates: start: 20170115

REACTIONS (14)
  - Abdominal distension [Unknown]
  - Drug intolerance [Unknown]
  - Haemoglobin decreased [Unknown]
  - Blood calcium decreased [Unknown]
  - Wrong technique in product usage process [Unknown]
  - Renal tubular acidosis [Unknown]
  - Diarrhoea [Unknown]
  - Decreased appetite [Unknown]
  - Infection [Unknown]
  - General physical health deterioration [Unknown]
  - Immunodeficiency [Unknown]
  - Depressed mood [Unknown]
  - Pneumonia [Unknown]
  - Asthenia [Unknown]
